FAERS Safety Report 13051366 (Version 1)
Quarter: 2016Q4

REPORT INFORMATION
  Report Type: Spontaneous
  Country: US (occurrence: US)
  Receive Date: 20161221
  Receipt Date: 20161221
  Transmission Date: 20170207
  Serious: Yes (Hospitalization)
  Sender: FDA-Public Use
  Company Number: US-NOVOPROD-478501

PATIENT
  Age: 49 Year
  Sex: Male
  Weight: 79.37 kg

DRUGS (9)
  1. GABAPENTIN. [Concomitant]
     Active Substance: GABAPENTIN
     Indication: DIABETIC NEUROPATHY
     Dosage: 300 MG, QD
     Route: 048
  2. PANTOPRAZOLE [Concomitant]
     Active Substance: PANTOPRAZOLE SODIUM
     Indication: GASTROOESOPHAGEAL REFLUX DISEASE
     Dosage: 40 MG, QD IN THE AM
     Dates: start: 201601
  3. LEVEMIR [Suspect]
     Active Substance: INSULIN DETEMIR
     Dosage: 45 U, QD
     Route: 058
     Dates: start: 20160119
  4. LEVEMIR [Suspect]
     Active Substance: INSULIN DETEMIR
     Indication: TYPE 2 DIABETES MELLITUS
     Dosage: 50 U, QD
     Route: 058
     Dates: start: 2009
  5. METFORMIN [Concomitant]
     Active Substance: METFORMIN HYDROCHLORIDE
     Indication: LATENT AUTOIMMUNE DIABETES IN ADULTS
  6. PRAVASTATIN. [Concomitant]
     Active Substance: PRAVASTATIN
     Indication: BLOOD CHOLESTEROL INCREASED
     Dosage: 20 MG, UNK
  7. LEVEMIR [Suspect]
     Active Substance: INSULIN DETEMIR
     Indication: LATENT AUTOIMMUNE DIABETES IN ADULTS
     Dosage: 30 U, QD
     Route: 058
     Dates: start: 20160114, end: 20160118
  8. METFORMIN [Concomitant]
     Active Substance: METFORMIN HYDROCHLORIDE
     Indication: TYPE 2 DIABETES MELLITUS
     Dosage: 1000 MG, BID
     Route: 048
  9. ALPRAZOLAM. [Concomitant]
     Active Substance: ALPRAZOLAM
     Indication: ANXIETY
     Dosage: 1 MG, QD AT BEDTIME
     Dates: start: 201507

REACTIONS (1)
  - Diabetic ketoacidosis [Recovered/Resolved]

NARRATIVE: CASE EVENT DATE: 20160106
